FAERS Safety Report 9531345 (Version 1)
Quarter: 2013Q3

REPORT INFORMATION
  Report Type: Spontaneous
  Country: US (occurrence: None)
  Receive Date: 20130916
  Receipt Date: 20130916
  Transmission Date: 20140515
  Serious: No
  Sender: FDA-Public Use
  Company Number: None

PATIENT
  Age: 66 Year
  Sex: Male
  Weight: 88.45 kg

DRUGS (1)
  1. MIDAZOLAM [Suspect]
     Indication: UNEVALUABLE EVENT
     Dosage: 8 MG ONCE DAILY, GIVEN INTO/UNDER THE SKIN
     Dates: start: 20110317, end: 20110317

REACTIONS (5)
  - Overdose [None]
  - Memory impairment [None]
  - Optic nerve injury [None]
  - Blood pressure abnormal [None]
  - Pulse abnormal [None]
